FAERS Safety Report 18961585 (Version 3)
Quarter: 2021Q2

REPORT INFORMATION
  Report Type: Spontaneous
  Country: US (occurrence: US)
  Receive Date: 20210302
  Receipt Date: 20210511
  Transmission Date: 20210717
  Serious: Yes (Hospitalization, Other)
  Sender: FDA-Public Use
  Company Number: US-SA-2021SA069764

PATIENT
  Age: 54 Year
  Sex: Female

DRUGS (1)
  1. CAPRELSA [Suspect]
     Active Substance: VANDETANIB
     Indication: THYROID CANCER
     Dosage: 300 MG, QD
     Route: 048
     Dates: start: 20190624

REACTIONS (5)
  - Mastoiditis [Unknown]
  - Product dose omission issue [Unknown]
  - Product distribution issue [Unknown]
  - Insurance issue [Unknown]
  - Blood pressure increased [Unknown]
